FAERS Safety Report 18104654 (Version 2)
Quarter: 2020Q4

REPORT INFORMATION
  Report Type: Spontaneous
  Country: US (occurrence: US)
  Receive Date: 20200803
  Receipt Date: 20201202
  Transmission Date: 20210113
  Serious: Yes (Hospitalization, Other)
  Sender: FDA-Public Use
  Company Number: US-PURDUE-USA-2020-0160322

PATIENT
  Sex: Male

DRUGS (2)
  1. OXYCONTIN [Suspect]
     Active Substance: OXYCODONE HYDROCHLORIDE
     Indication: PRODUCT USED FOR UNKNOWN INDICATION
     Dosage: UNK
     Route: 048
  2. INSULIN [Concomitant]
     Active Substance: INSULIN NOS
     Indication: TYPE 1 DIABETES MELLITUS
     Dosage: UNK
     Route: 065

REACTIONS (9)
  - Hospitalisation [Unknown]
  - Blood glucose increased [Unknown]
  - Conversion disorder [Unknown]
  - Drug withdrawal syndrome [Unknown]
  - Hallucination, auditory [Unknown]
  - Depression [Unknown]
  - Hallucination [Unknown]
  - Mental disorder [Unknown]
  - Drug dependence [Unknown]
